FAERS Safety Report 9979220 (Version 1)
Quarter: 2014Q1

REPORT INFORMATION
  Report Type: Report from Study
  Country: US (occurrence: US)
  Receive Date: 20140306
  Receipt Date: 20140306
  Transmission Date: 20141002
  Serious: No
  Sender: FDA-Public Use
  Company Number: US-ABBVIE-13P-163-1169828-00

PATIENT
  Age: 58 Year
  Sex: Female

DRUGS (19)
  1. HUMIRA [Suspect]
     Indication: RHEUMATOID ARTHRITIS
     Dates: start: 201308
  2. LORATADINE [Concomitant]
     Indication: HYPERSENSITIVITY
  3. EFFEXOR [Concomitant]
     Indication: FIBROMYALGIA
  4. EFFEXOR [Concomitant]
     Indication: NEURALGIA
  5. GABAPENTIN [Concomitant]
     Indication: FIBROMYALGIA
     Dosage: AT BEDTIME
  6. GABAPENTIN [Concomitant]
     Indication: NEURALGIA
  7. CYCLOBENZAPRINE [Concomitant]
     Indication: MUSCLE RELAXANT THERAPY
     Dosage: EVERY EIGHT HOURS
  8. TOPIRAMATE [Concomitant]
     Indication: MIGRAINE PROPHYLAXIS
  9. LEVOTHYROXINE [Concomitant]
     Indication: HYPOTHYROIDISM
  10. OXYBUTYNIN [Concomitant]
     Indication: URINE OUTPUT DECREASED
  11. DICYCLOMINE [Concomitant]
     Indication: IRRITABLE BOWEL SYNDROME
     Dosage: HALF HOUR BEFORE MEALS AND AT BEDTIME
  12. METHOTREXATE [Concomitant]
     Indication: RHEUMATOID ARTHRITIS
     Dosage: EIGHT
  13. FOLIC ACID [Concomitant]
     Indication: PRODUCT USED FOR UNKNOWN INDICATION
  14. HYDROCODONE/APAP [Concomitant]
     Indication: PAIN
     Dosage: 5/500 MG, ONE OR TWO DAILY
  15. ATORVASTATIN [Concomitant]
     Indication: BLOOD CHOLESTEROL
     Dosage: AT BEDTIME
  16. NEXIUM [Concomitant]
     Indication: GASTROOESOPHAGEAL REFLUX DISEASE
     Dosage: EVERY MORNING
  17. ASA [Concomitant]
     Indication: PRODUCT USED FOR UNKNOWN INDICATION
  18. FLONASE [Concomitant]
     Indication: ASTHMA
     Dosage: TWO PUFFS
     Route: 055
  19. VITAMIN D [Concomitant]
     Indication: PRODUCT USED FOR UNKNOWN INDICATION

REACTIONS (2)
  - Arthritis [Not Recovered/Not Resolved]
  - Arthralgia [Not Recovered/Not Resolved]
